FAERS Safety Report 15678853 (Version 2)
Quarter: 2018Q4

REPORT INFORMATION
  Report Type: Spontaneous
  Country: DE (occurrence: DE)
  Receive Date: 20181202
  Receipt Date: 20181219
  Transmission Date: 20190205
  Serious: Yes (Life-Threatening, Hospitalization, Other)
  Sender: FDA-Public Use
  Company Number: PHHY2018DE171161

PATIENT
  Age: 66 Year
  Sex: Male
  Weight: 85 kg

DRUGS (10)
  1. ELIQUIS [Suspect]
     Active Substance: APIXABAN
     Dosage: 5 MG, QD  (2.5 MG, BID)
     Route: 048
     Dates: start: 201604, end: 201608
  2. VALSARTAN. [Concomitant]
     Active Substance: VALSARTAN
     Indication: INFARCTION
     Dosage: UNK
     Route: 065
  3. VALSARTAN. [Concomitant]
     Active Substance: VALSARTAN
     Indication: CORONARY ARTERY DISEASE
     Dosage: 80 MG, QD
     Route: 048
     Dates: start: 2015
  4. BISOPROLOL [Concomitant]
     Active Substance: BISOPROLOL
     Indication: CORONARY ARTERY DISEASE
     Dosage: 2.5 MG, QD (DAILY DOSE: 2.5 MG MILLIGRAM(S) EVERY DAY)
     Route: 048
     Dates: start: 2015
  5. ATORVASTATIN [Concomitant]
     Active Substance: ATORVASTATIN
     Indication: CORONARY ARTERY DISEASE
     Dosage: 40 MG, QD
     Route: 048
     Dates: start: 2015
  6. ACETYLSALICYLIC ACID [Suspect]
     Active Substance: ASPIRIN
     Indication: CORONARY ARTERY DISEASE
     Dosage: 100 MG, QD (DAILY DOSE: 100 MG MILLIGRAM(S) EVERY DAY)
     Route: 048
     Dates: start: 2015
  7. ELIQUIS [Suspect]
     Active Substance: APIXABAN
     Indication: ATRIAL FIBRILLATION
     Dosage: 2.5 MG, QD
     Route: 048
     Dates: start: 201604, end: 201604
  8. ATORVASTATIN [Concomitant]
     Active Substance: ATORVASTATIN
     Indication: HYPERLIPIDAEMIA
     Dosage: UNK
     Route: 065
  9. ATORVASTATIN [Concomitant]
     Active Substance: ATORVASTATIN
     Indication: HYPERLIPIDAEMIA
  10. ELIQUIS [Suspect]
     Active Substance: APIXABAN
     Indication: CEREBROVASCULAR ACCIDENT PROPHYLAXIS
     Dosage: 5 MG, UNK
     Route: 065

REACTIONS (9)
  - Incorrect dose administered [Unknown]
  - Prescribed underdose [Unknown]
  - Large intestine polyp [Unknown]
  - Shock haemorrhagic [Recovered/Resolved]
  - Haemorrhoids [Unknown]
  - Diverticulum [Unknown]
  - Atrial flutter [Unknown]
  - Lower gastrointestinal haemorrhage [Recovered/Resolved]
  - Haemorrhagic anaemia [Recovered/Resolved]

NARRATIVE: CASE EVENT DATE: 20160713
